FAERS Safety Report 23825501 (Version 2)
Quarter: 2024Q2

REPORT INFORMATION
  Report Type: Spontaneous
  Country: US (occurrence: US)
  Receive Date: 20240507
  Receipt Date: 20240613
  Transmission Date: 20240717
  Serious: No
  Sender: FDA-Public Use
  Company Number: US-LUPIN PHARMACEUTICALS INC.-2024-03685

PATIENT

DRUGS (1)
  1. MOXIFLOXACIN HYDROCHLORIDE [Suspect]
     Active Substance: MOXIFLOXACIN HYDROCHLORIDE\MOXIFLOXACIN HYDROCHLORIDE MONOHYDRATE
     Indication: Product used for unknown indication
     Dosage: 1 DROP, QID, 4 TIMES A DAY
     Route: 065

REACTIONS (5)
  - Product dose omission issue [Unknown]
  - Product container seal issue [Unknown]
  - Product container issue [Unknown]
  - Product packaging quantity issue [Unknown]
  - No adverse event [Unknown]
